FAERS Safety Report 16799310 (Version 3)
Quarter: 2019Q4

REPORT INFORMATION
  Report Type: Spontaneous
  Country: US (occurrence: US)
  Receive Date: 20190912
  Receipt Date: 20191219
  Transmission Date: 20200122
  Serious: No
  Sender: FDA-Public Use
  Company Number: US-PFIZER INC-2019394465

PATIENT
  Age: 61 Year
  Sex: Female
  Weight: 63.49 kg

DRUGS (19)
  1. ASPIRIN [ACETYLSALICYLIC ACID] [Concomitant]
     Active Substance: ASPIRIN
     Dosage: 81 MG, 1X/DAY
     Dates: start: 201106
  2. FAMCICLOVIR. [Concomitant]
     Active Substance: FAMCICLOVIR
     Dosage: 250 MG, 2X/DAY
     Dates: start: 201106
  3. ADVAIR HFA [Concomitant]
     Active Substance: FLUTICASONE PROPIONATE\SALMETEROL XINAFOATE
     Dosage: 2 DF, 2X/DAY
     Dates: start: 201106
  4. RAPAMUNE [Suspect]
     Active Substance: SIROLIMUS
     Dosage: 3 MG, ONCE A DAY (AM:3) [EVERY DAY]
     Route: 048
  5. CALCIUM + VIT D [Concomitant]
     Active Substance: CALCIUM\VITAMIN D
     Dosage: 500 MG, 2X/DAY
     Dates: start: 201106
  6. CRESTOR [Concomitant]
     Active Substance: ROSUVASTATIN CALCIUM
     Dosage: 10 MG, 1X/DAY
     Dates: start: 201106
  7. LOSARTAN. [Concomitant]
     Active Substance: LOSARTAN
     Dosage: 25 MG, 1X/DAY
     Dates: start: 201106
  8. MAGNESIUM OXIDE. [Concomitant]
     Active Substance: MAGNESIUM OXIDE
     Dosage: 2500 MG, DAILY (AM:2, PM:1, PM: 2)
     Dates: start: 201106
  9. METOPROLOL TARTRATE. [Concomitant]
     Active Substance: METOPROLOL TARTRATE
     Dosage: 0.5 DF, 1X/DAY (1/2 TAB)
     Dates: start: 201106
  10. FAMOTIDINE. [Concomitant]
     Active Substance: FAMOTIDINE
     Dosage: 20 MG, 2X/DAY
     Dates: start: 201106
  11. FERROUS SULFATE. [Concomitant]
     Active Substance: FERROUS SULFATE
     Dosage: 975 MG, 2X/DAY (AM: 1, PM:1, PM:1)
     Dates: start: 201106
  12. FOSAMAX [Concomitant]
     Active Substance: ALENDRONATE SODIUM
     Dosage: UNK, WEEKLY 70MG/75 ML TABLET: WEEKLY/SUNDAY )
     Dates: start: 201106
  13. ONDANSETRON [Concomitant]
     Active Substance: ONDANSETRON
     Dosage: UNK UNK, AS NEEDED
     Dates: start: 201106
  14. PREDNISONE. [Concomitant]
     Active Substance: PREDNISONE
     Dosage: 5 MG, 1X/DAY
     Dates: start: 201106
  15. PROGRAF [Concomitant]
     Active Substance: TACROLIMUS
     Dosage: 4 MG, DAILY (AM: 2, PM: 2)
     Dates: start: 201106
  16. TRAMADOL HYDROCHLORIDE. [Concomitant]
     Active Substance: TRAMADOL HYDROCHLORIDE
     Dosage: 50 MG, AS NEEDED
     Dates: start: 201106
  17. RAPAMUNE [Suspect]
     Active Substance: SIROLIMUS
     Indication: LUNG TRANSPLANT
     Dosage: 4 MG, DAILY
     Dates: start: 2011
  18. AZITHROMYCIN ANHYDROUS. [Concomitant]
     Active Substance: AZITHROMYCIN ANHYDROUS
     Dosage: 250 MG, ALTERNATE DAY (TUESDAY, THURSDAY, SATURDAY)
     Dates: start: 201106
  19. SULFAMETHOXAZOLE/TRIMIPRAMINE [Concomitant]
     Dosage: 1 DF, ALTERNATE DAY (1 BY MOUTH MONDAY,WEDNESDAY, FRIDAY2:00PM)
     Route: 048
     Dates: start: 201106

REACTIONS (3)
  - Product use in unapproved indication [Unknown]
  - Off label use [Unknown]
  - Blood test abnormal [Unknown]

NARRATIVE: CASE EVENT DATE: 201909
